FAERS Safety Report 7433927-7 (Version None)
Quarter: 2011Q2

REPORT INFORMATION
  Report Type: 
  Country: None (occurrence: None)
  Receive Date: 20110418
  Receipt Date: 20110407
  Transmission Date: 20111010
  Serious: Yes (Death, Hospitalization)
  Sender: FDA-Public Use
  Company Number: 115371

PATIENT
  Age: 50 Year
  Sex: Male

DRUGS (3)
  1. ADRIAMYCIN PFS [Suspect]
     Indication: B-CELL LYMPHOMA
     Dosage: 50MG/M2
  2. RITUXIMAB [Concomitant]
  3. CHEMOTHERAPY [Concomitant]

REACTIONS (4)
  - HEPATIC FAILURE [None]
  - HEPATORENAL SYNDROME [None]
  - HEPATITIS B [None]
  - LIVER TRANSPLANT [None]
